FAERS Safety Report 11641412 (Version 1)
Quarter: 2015Q4

REPORT INFORMATION
  Report Type: Spontaneous
  Country: DE (occurrence: DE)
  Receive Date: 20151019
  Receipt Date: 20151019
  Transmission Date: 20160304
  Serious: Yes (Other)
  Sender: FDA-Public Use
  Company Number: DE-HORIZON-PRE-0178-2015

PATIENT
  Sex: Female
  Weight: 79 kg

DRUGS (5)
  1. RANITIDINE [Concomitant]
     Active Substance: RANITIDINE\RANITIDINE HYDROCHLORIDE
     Indication: PROPHYLAXIS
     Route: 048
     Dates: start: 20140930, end: 20150320
  2. LORATADINE. [Concomitant]
     Active Substance: LORATADINE
     Indication: CHRONIC SPONTANEOUS URTICARIA
     Route: 048
  3. PREDNISONE. [Suspect]
     Active Substance: PREDNISONE
     Indication: CHRONIC SPONTANEOUS URTICARIA
     Dosage: 15 MG DAILY
     Route: 048
     Dates: start: 20140930, end: 20150320
  4. SERTRALINE [Concomitant]
     Active Substance: SERTRALINE HYDROCHLORIDE
     Indication: DEPRESSION
     Route: 048
     Dates: start: 20140708, end: 20150320
  5. FOLIO [Concomitant]
     Active Substance: FOLIC ACID
     Indication: PROPHYLAXIS
     Route: 048
     Dates: start: 20140708, end: 20150320

REACTIONS (1)
  - Gestational diabetes [Recovered/Resolved]
